FAERS Safety Report 6489586-3 (Version None)
Quarter: 2009Q4

REPORT INFORMATION
  Report Type: 
  Country: None (occurrence: None)
  Receive Date: 20091210
  Receipt Date: 20091130
  Transmission Date: 20100525
  Serious: Yes (Hospitalization)
  Sender: FDA-Public Use
  Company Number: JP-NOVOPROD-290750

PATIENT
  Age: 57 Year
  Sex: Male

DRUGS (2)
  1. NOVORAPID 30 MIX CHU PENFILL [Suspect]
     Indication: TYPE 2 DIABETES MELLITUS
     Dosage: 16+0+6
     Dates: start: 20070501, end: 20071001
  2. HUMALOG [Concomitant]
     Indication: DRUG USE FOR UNKNOWN INDICATION
     Dosage: UNK

REACTIONS (3)
  - ANTI-INSULIN ANTIBODY POSITIVE [None]
  - HYPERSENSITIVITY [None]
  - INSULIN RESISTANCE [None]
